FAERS Safety Report 13409231 (Version 3)
Quarter: 2018Q1

REPORT INFORMATION
  Report Type: Spontaneous
  Country: US (occurrence: US)
  Receive Date: 20170406
  Receipt Date: 20180119
  Transmission Date: 20180508
  Serious: No
  Sender: FDA-Public Use
  Company Number: US-JNJFOC-20170117679

PATIENT
  Age: 4 Year
  Sex: Male

DRUGS (9)
  1. RISPERDAL [Suspect]
     Active Substance: RISPERIDONE
     Indication: ABNORMAL BEHAVIOUR
     Dosage: DOSES OF 1 MG/ML, 0.5 ML AM, 0.25 ML PM, 1 ML, 0.25 MG BD, 1 MG/ML, 0.75 MG QAM, 0.5 ML QPM
     Route: 048
     Dates: start: 20070909, end: 20080310
  2. RISPERDAL [Suspect]
     Active Substance: RISPERIDONE
     Indication: AUTISM SPECTRUM DISORDER
     Dosage: IN VARYING DOSES OF 0.5 MG, 1 1/2 TABLETS BD, 1 1/2 TABLETS QAM, 2 TABLETS QPM, 1 TABLET EVERY PM
     Route: 048
     Dates: start: 20080328, end: 20090319
  3. RISPERIDONE. [Suspect]
     Active Substance: RISPERIDONE
     Indication: ABNORMAL BEHAVIOUR
     Route: 048
     Dates: start: 20090503, end: 20131004
  4. RISPERIDONE. [Suspect]
     Active Substance: RISPERIDONE
     Indication: AUTISM SPECTRUM DISORDER
     Route: 048
     Dates: start: 20090503, end: 20131004
  5. RISPERDAL [Suspect]
     Active Substance: RISPERIDONE
     Indication: AUTISM SPECTRUM DISORDER
     Dosage: DOSES OF 1 MG/ML, 0.5 ML AM, 0.25 ML PM, 1 ML, 0.25 MG BD, 1 MG/ML, 0.75 MG QAM, 0.5 ML QPM
     Route: 048
     Dates: start: 20070909, end: 20080310
  6. RISPERDAL [Suspect]
     Active Substance: RISPERIDONE
     Indication: ABNORMAL BEHAVIOUR
     Dosage: IN VARYING DOSES OF 0.5 MG, 1 1/2 TABLETS BD, 1 1/2 TABLETS QAM, 2 TABLETS QPM, 1 TABLET EVERY PM
     Route: 048
     Dates: start: 20080328, end: 20090319
  7. RISPERDAL [Suspect]
     Active Substance: RISPERIDONE
     Indication: AUTISM SPECTRUM DISORDER
     Dosage: IN VARYING DOSES OF 0.5 MG, 1 1/2 TABLETS BD, 1 1/2 TABLETS QAM, 2 TABLETS QPM, 1 TABLET EVERY PM
     Route: 048
     Dates: start: 20080328, end: 20090319
  8. RISPERIDONE. [Suspect]
     Active Substance: RISPERIDONE
     Indication: AUTISM SPECTRUM DISORDER
     Route: 048
     Dates: start: 20090503, end: 20131004
  9. RISPERDAL [Suspect]
     Active Substance: RISPERIDONE
     Indication: AUTISM SPECTRUM DISORDER
     Dosage: DOSES OF 1 MG/ML, 0.5 ML AM, 0.25 ML PM, 1 ML, 0.25 MG BD, 1 MG/ML, 0.75 MG QAM, 0.5 ML QPM
     Route: 048
     Dates: start: 20070909, end: 20080310

REACTIONS (6)
  - Drug prescribing error [Unknown]
  - Emotional distress [Unknown]
  - Off label use [Unknown]
  - Intentional product misuse [Unknown]
  - Gynaecomastia [Unknown]
  - Obesity [Unknown]

NARRATIVE: CASE EVENT DATE: 20080328
